FAERS Safety Report 9998450 (Version 1)
Quarter: 2014Q1

REPORT INFORMATION
  Report Type: Spontaneous
  Country: FR (occurrence: FR)
  Receive Date: 20140312
  Receipt Date: 20140312
  Transmission Date: 20141002
  Serious: Yes (Other)
  Sender: FDA-Public Use
  Company Number: FR-BIOGENIDEC-2014BI019741

PATIENT
  Age: 53 Year
  Sex: Female

DRUGS (2)
  1. TECFIDERA [Suspect]
     Indication: RELAPSING-REMITTING MULTIPLE SCLEROSIS
     Route: 048
     Dates: start: 20131130, end: 20140101
  2. JOSIR [Concomitant]
     Indication: URINARY TRACT DISORDER
     Route: 048
     Dates: start: 20111214

REACTIONS (5)
  - Stomatitis [Recovered/Resolved]
  - Cyanosis [Recovered/Resolved]
  - Fatigue [Recovered/Resolved with Sequelae]
  - Gastrointestinal disorder [Recovered/Resolved]
  - Headache [Recovered/Resolved]
